FAERS Safety Report 9518336 (Version 1)
Quarter: 2013Q1

REPORT INFORMATION
  Report Type: Spontaneous
  Country: US (occurrence: None)
  Receive Date: 20130305
  Receipt Date: 20130305
  Transmission Date: 20140127
  Serious: Yes (Other)
  Sender: FDA-Public Use
  Company Number: 163-21880-12081034

PATIENT
  Age: 70 Year
  Sex: Female
  Weight: 118.39 kg

DRUGS (17)
  1. REVLIMID [Suspect]
     Indication: PLASMA CELL MYELOMA
     Dosage: 25 MG, 21 IN 21 D, PO
     Route: 048
     Dates: start: 20120511, end: 20120913
  2. DECADRON [Suspect]
     Dosage: 20 MG, 4 IN 4 D, UNK
  3. ASPIRIN (ACETYLSALICYLIC ACID) (TABLETS) [Concomitant]
  4. ATENOLOL (ATENOLOL) (TABLETS) [Concomitant]
  5. DETROL (TOLTERODINE L-TARTRATE) (TABLETS) [Concomitant]
  6. HYDROCHLOROTHIAZIDE (HYDROCHLOROTHIAZIDE) (TABLETS) [Concomitant]
  7. MICARDIS (TELMISARTAN) (UNKNOWN) [Concomitant]
  8. MOTRIN (IBUPROFEN) (UNKNOWN) [Concomitant]
  9. STOOL SOFTENER (DOCUSATE SODIUM) (UNKNOWN) [Concomitant]
  10. SYMBICORT (SYMBICORT TURBUHALER ^DRACO^) (AEROSOL FOR INHALATION) [Concomitant]
  11. VITAMIN D (ERGOCALCIFEROL) (CAPSULES) [Concomitant]
  12. ZOCOR (SIMVASTATIN) (10 MILLIGRAM, TABLETS) [Concomitant]
  13. ALBUTEROL (SALBUTAMOL) (AEROSOL FOR INHALATION) [Concomitant]
  14. CALCIUM WITH VITAMIN D (CALCIUM WITH VITAMIN D) (TABLETS) [Concomitant]
  15. IBUPROFEN (IBUPROFEN) (CAPSULES) [Concomitant]
  16. LIPITOR (ATORVASTATIN) (TABLETS) [Concomitant]
  17. SIMVASTATIN [Concomitant]

REACTIONS (4)
  - Pneumonitis [None]
  - Tremor [None]
  - Hyperhidrosis [None]
  - Constipation [None]
